FAERS Safety Report 4496582-4 (Version None)
Quarter: 2004Q4

REPORT INFORMATION
  Report Type: 
  Country: None (occurrence: None)
  Receive Date: 20041109
  Receipt Date: 20041025
  Transmission Date: 20050328
  Serious: Yes (Hospitalization)
  Sender: FDA-Public Use
  Company Number: 200413205EU

PATIENT
  Age: 61 Year
  Sex: Male
  Weight: 81 kg

DRUGS (5)
  1. ARAVA [Suspect]
     Indication: RHEUMATOID ARTHRITIS
     Route: 048
     Dates: start: 20040920, end: 20041023
  2. METHOTREXATE [Concomitant]
  3. NAPROXEN [Concomitant]
     Route: 048
  4. DEFLAZACORT [Concomitant]
     Route: 048
  5. HYDROXYCHLOROQUINE SULFATE [Concomitant]
     Route: 048

REACTIONS (4)
  - ANTINUCLEAR ANTIBODY POSITIVE [None]
  - ARTHRALGIA [None]
  - HEPATITIS TOXIC [None]
  - PRURITUS [None]
